FAERS Safety Report 20499554 (Version 2)
Quarter: 2022Q1

REPORT INFORMATION
  Report Type: Spontaneous
  Country: IR (occurrence: IR)
  Receive Date: 20220222
  Receipt Date: 20220228
  Transmission Date: 20220423
  Serious: Yes (Hospitalization, Other)
  Sender: FDA-Public Use
  Company Number: IR-PHARMALEX-2022000073

PATIENT
  Age: 21 Year
  Sex: Male

DRUGS (2)
  1. TRAMADOL HYDROCHLORIDE [Suspect]
     Active Substance: TRAMADOL HYDROCHLORIDE
     Indication: Product used for unknown indication
     Dosage: 200 MILLIGRAM, QD, 2-3 TABLETS
     Route: 048
  2. TRAMADOL HYDROCHLORIDE [Suspect]
     Active Substance: TRAMADOL HYDROCHLORIDE
     Dosage: 10 DOSAGE FORM, SINGLE (10 TABLETS OF 225 MILLIGRAM)
     Route: 048
     Dates: start: 20210620

REACTIONS (10)
  - Pneumonia aspiration [Recovering/Resolving]
  - Intentional overdose [Unknown]
  - Generalised tonic-clonic seizure [Recovered/Resolved]
  - Acute kidney injury [Recovering/Resolving]
  - Metabolic acidosis [Recovered/Resolved]
  - Rhabdomyolysis [Recovering/Resolving]
  - Sinus tachycardia [Recovered/Resolved]
  - Toxicity to various agents [Unknown]
  - Suicide attempt [Unknown]
  - Drug abuse [Unknown]

NARRATIVE: CASE EVENT DATE: 20210101
